FAERS Safety Report 7558922-9 (Version None)
Quarter: 2011Q2

REPORT INFORMATION
  Report Type: 
  Country: None (occurrence: None)
  Receive Date: 20110621
  Receipt Date: 20110614
  Transmission Date: 20111010
  Serious: Yes (Death, Hospitalization, Other)
  Sender: FDA-Public Use
  Company Number: PHHY2011DE52776

PATIENT
  Sex: Female
  Weight: 39 kg

DRUGS (12)
  1. METOCLOPRAMIDE [Concomitant]
     Dosage: 12 MG, UNK
     Dates: start: 20100913, end: 20101025
  2. PANTOPRAZOLE [Concomitant]
     Dosage: 20 MG, UNK
     Dates: start: 20100101
  3. TARGIN [Concomitant]
     Dates: start: 20100101
  4. FLUOROURACIL [Concomitant]
     Dosage: 600 MG/M2, UNK
     Dates: start: 20100913, end: 20101025
  5. ZOMETA [Suspect]
     Indication: PROPHYLAXIS
     Dosage: 4 MG, PER 5 ML EVERY 4 WEEKS
     Route: 042
     Dates: start: 20100913, end: 20101115
  6. BISOPROLOL FUMARATE [Concomitant]
     Dosage: 5 MG, UNK
     Dates: start: 20100101
  7. DEXABENE [Concomitant]
     Dosage: 12 MG, UNK
     Dates: start: 20100913, end: 20101025
  8. DIGITOXIN TAB [Concomitant]
     Dosage: 0.07 MG, UNK
     Dates: start: 20100101
  9. MESNA [Concomitant]
     Dosage: 400 MG/M2, UNK
     Dates: start: 20100913, end: 20101025
  10. NAVOBAN [Concomitant]
     Dosage: 5 MEQ/KG, UNK
     Dates: start: 20100913, end: 20101025
  11. METHOTREXATE [Concomitant]
     Dosage: 40 MG/M2, UNK
     Dates: start: 20100913, end: 20101025
  12. CYCLOPHOSPHAMIDE [Concomitant]
     Dosage: 600 MG/M2, UNK
     Dates: start: 20100913, end: 20101025

REACTIONS (7)
  - NEOPLASM PROGRESSION [None]
  - NEOPLASM MALIGNANT [None]
  - FATIGUE [None]
  - GENERAL PHYSICAL HEALTH DETERIORATION [None]
  - ASCITES [None]
  - CACHEXIA [None]
  - MALIGNANT PLEURAL EFFUSION [None]
